FAERS Safety Report 21438743 (Version 1)
Quarter: 2022Q4

REPORT INFORMATION
  Report Type: Report from Study
  Country: US (occurrence: US)
  Receive Date: 20221011
  Receipt Date: 20221011
  Transmission Date: 20230112
  Serious: Yes (Other)
  Sender: FDA-Public Use
  Company Number: US-ALNYLAM PHARMACEUTICALS, INC.-ALN-2022-003461

PATIENT

DRUGS (3)
  1. GIVLAARI [Suspect]
     Active Substance: GIVOSIRAN SODIUM
     Indication: Porphyria
     Dosage: UNK
     Dates: start: 20200212
  2. HEMATIN [Concomitant]
     Active Substance: HEMATIN
     Indication: Product used for unknown indication
     Dosage: 150 UNK
  3. HEMATIN [Concomitant]
     Active Substance: HEMATIN
     Dosage: REDUCED BY 1/3

REACTIONS (2)
  - Porphyria acute [Not Recovered/Not Resolved]
  - Eye infection [Unknown]
